FAERS Safety Report 25231618 (Version 1)
Quarter: 2025Q2

REPORT INFORMATION
  Report Type: Spontaneous
  Country: US (occurrence: None)
  Receive Date: 20250423
  Receipt Date: 20250423
  Transmission Date: 20250717
  Serious: Yes (Life-Threatening, Hospitalization)
  Sender: FDA-CTU
  Company Number: None

PATIENT
  Age: 79 Year
  Sex: Male
  Weight: 81.9 kg

DRUGS (2)
  1. NADOFARAGENE FIRADENOVEC [Suspect]
     Active Substance: NADOFARAGENE FIRADENOVEC
     Indication: Bladder cancer
     Route: 043
     Dates: start: 20250421
  2. OXYBUTYNIN [Concomitant]
     Active Substance: OXYBUTYNIN
     Dates: start: 20250421

REACTIONS (5)
  - Asthenia [None]
  - Fatigue [None]
  - Confusional state [None]
  - Blood phosphorus abnormal [None]
  - Blood magnesium abnormal [None]

NARRATIVE: CASE EVENT DATE: 20250422
